FAERS Safety Report 6699887-1 (Version None)
Quarter: 2010Q2

REPORT INFORMATION
  Report Type: 
  Country: None (occurrence: None)
  Receive Date: 20100427
  Receipt Date: 20100427
  Transmission Date: 20101027
  Serious: Yes (Hospitalization)
  Sender: FDA-Public Use
  Company Number: None

PATIENT
  Sex: Male
  Weight: 89.7 kg

DRUGS (2)
  1. CISPLATIN [Suspect]
     Dosage: 296 MG
     Dates: end: 20100323
  2. TAXOL [Suspect]
     Dosage: 592 MG
     Dates: end: 20100323

REACTIONS (7)
  - DEHYDRATION [None]
  - FATIGUE [None]
  - GASTRITIS [None]
  - NAUSEA [None]
  - OESOPHAGITIS [None]
  - PAIN [None]
  - VOMITING [None]
